FAERS Safety Report 4452092-1 (Version None)
Quarter: 2004Q3

REPORT INFORMATION
  Report Type: 
  Country: None (occurrence: None)
  Receive Date: 20040916
  Receipt Date: 20040903
  Transmission Date: 20050211
  Serious: Yes (Other)
  Sender: FDA-Public Use
  Company Number: US-JNJFOC-20040505987

PATIENT
  Sex: Female
  Weight: 127.01 kg

DRUGS (32)
  1. REMICADE [Suspect]
     Indication: RHEUMATOID ARTHRITIS
     Route: 042
  2. GLUCOPHAGE [Concomitant]
  3. INSULIN N [Concomitant]
  4. CELEBREX [Concomitant]
     Indication: ARTHRITIS
  5. MAVIK [Concomitant]
     Indication: BLOOD PRESSURE
  6. GLYBURIDE [Concomitant]
  7. FOLIC ACID [Concomitant]
  8. METHOTREXATE [Concomitant]
     Indication: RHEUMATOID ARTHRITIS
  9. ALLOPURINOL [Concomitant]
  10. LIPITOR [Concomitant]
  11. PREMARIN [Concomitant]
  12. TRICOR [Concomitant]
  13. HUMULIN N [Concomitant]
     Dosage: EVENING
  14. HUMULIN N [Concomitant]
     Dosage: MORNING
  15. HUMALOG [Concomitant]
     Dosage: SLIDING SCALE
  16. GUAIFENEX [Concomitant]
  17. GUAIFENEX [Concomitant]
  18. GUAIFENEX [Concomitant]
  19. METFORMIN HCL [Concomitant]
  20. MULTI-VITAMIN [Concomitant]
  21. MULTI-VITAMIN [Concomitant]
  22. MULTI-VITAMIN [Concomitant]
  23. MULTI-VITAMIN [Concomitant]
  24. MULTI-VITAMIN [Concomitant]
  25. MULTI-VITAMIN [Concomitant]
  26. MULTI-VITAMIN [Concomitant]
  27. MULTI-VITAMIN [Concomitant]
  28. ASPIRIN [Concomitant]
  29. TYLENOL [Concomitant]
  30. MAVIK [Concomitant]
  31. VITAMIN E [Concomitant]
  32. STOOL SOFTNER [Concomitant]

REACTIONS (9)
  - B-CELL LYMPHOMA STAGE II [None]
  - BREAST MASS [None]
  - DYSPHAGIA [None]
  - HAEMATOCRIT DECREASED [None]
  - HAEMOGLOBIN DECREASED [None]
  - LYMPHOCYTE COUNT DECREASED [None]
  - NECK MASS [None]
  - RED BLOOD CELL COUNT DECREASED [None]
  - THYROID MASS [None]
